FAERS Safety Report 25706451 (Version 1)
Quarter: 2025Q3

REPORT INFORMATION
  Report Type: Report from Study
  Country: CO (occurrence: CO)
  Receive Date: 20250820
  Receipt Date: 20250820
  Transmission Date: 20251020
  Serious: Yes (Death)
  Sender: ABBVIE
  Company Number: CO-ABBVIE-6422501

PATIENT
  Age: 74 Year
  Sex: Male

DRUGS (1)
  1. VENCLEXTA [Suspect]
     Active Substance: VENETOCLAX
     Indication: Acute myeloid leukaemia
     Dosage: STRENGTH: 100MG
     Route: 048
     Dates: start: 20250709, end: 20250802

REACTIONS (1)
  - Infectious pleural effusion [Fatal]

NARRATIVE: CASE EVENT DATE: 20250101
